FAERS Safety Report 8536031-X (Version None)
Quarter: 2012Q3

REPORT INFORMATION
  Report Type: 
  Country: None (occurrence: None)
  Receive Date: 20120725
  Receipt Date: 20120719
  Transmission Date: 20120928
  Serious: Yes (Life-Threatening)
  Sender: FDA-Public Use
  Company Number: CA-NOVOPROD-356361

PATIENT
  Age: 58 Year
  Sex: Male
  Weight: 65 kg

DRUGS (6)
  1. VICTOZA [Suspect]
     Indication: PRODUCT USED FOR UNKNOWN INDICATION
     Dosage: 0.6 MG, QD
     Route: 058
  2. COVERSYL PLUS                      /01421201/ [Concomitant]
  3. FERROUS SULPHATE                   /00023601/ [Concomitant]
  4. ASPIRIN [Concomitant]
  5. METFORMIN HYDROCHLORIDE [Concomitant]
  6. LIPITOR [Concomitant]

REACTIONS (6)
  - ABDOMINAL DISTENSION [None]
  - WEIGHT DECREASED [None]
  - GASTRIC DISORDER [None]
  - GASTROOESOPHAGEAL REFLUX DISEASE [None]
  - INFREQUENT BOWEL MOVEMENTS [None]
  - FLATULENCE [None]
